FAERS Safety Report 9685795 (Version 1)
Quarter: 2013Q4

REPORT INFORMATION
  Report Type: Spontaneous
  Country: US (occurrence: US)
  Receive Date: 20131113
  Receipt Date: 20131113
  Transmission Date: 20140711
  Serious: No
  Sender: FDA-Public Use
  Company Number: US-PFIZER INC-2013322581

PATIENT
  Sex: 0

DRUGS (3)
  1. PRISTIQ [Suspect]
     Dosage: UNK
  2. ADDERALL [Concomitant]
     Dosage: UNK
  3. XYREM [Concomitant]
     Indication: NARCOLEPSY
     Dosage: UNK

REACTIONS (4)
  - Dry mouth [Unknown]
  - Oropharyngeal pain [Unknown]
  - Weight increased [Unknown]
  - Metabolic disorder [Unknown]
